FAERS Safety Report 8207490-7 (Version None)
Quarter: 2012Q1

REPORT INFORMATION
  Report Type: 
  Country: None (occurrence: None)
  Receive Date: 20120313
  Receipt Date: 20120313
  Transmission Date: 20120608
  Serious: Yes (Other)
  Sender: FDA-Public Use
  Company Number: None

PATIENT
  Sex: Female
  Weight: 69.8539 kg

DRUGS (11)
  1. CARBOPLATIN [Suspect]
     Dosage: 900 MG Q 21 DAYS IV
     Route: 042
  2. NEULASTA [Concomitant]
  3. TYLENOL [Concomitant]
  4. LEVAQUIN [Concomitant]
  5. PROTONIX [Concomitant]
  6. DEXAMETHASONE [Concomitant]
  7. ZANTAC [Concomitant]
  8. TAXOTERE [Suspect]
     Indication: BREAST CANCER STAGE III
     Dosage: 60 MG Q 21 DAYS IV  (ONLY DOSE BEFORE ADVERSE EVENT)
     Route: 042
     Dates: start: 20111209
  9. TAXOTERE [Suspect]
     Indication: BREAST CANCER STAGE III
     Dosage: 80 MG Q 21 DAYS IV
     Route: 042
  10. ATIVAN [Concomitant]
  11. HERCEPTIN [Concomitant]

REACTIONS (2)
  - WHITE BLOOD CELL COUNT DECREASED [None]
  - NEUTROPHIL COUNT DECREASED [None]
